FAERS Safety Report 6494179-8 (Version None)
Quarter: 2009Q4

REPORT INFORMATION
  Report Type: 
  Country: None (occurrence: None)
  Receive Date: 20091214
  Receipt Date: 20090430
  Transmission Date: 20100525
  Serious: No
  Sender: FDA-Public Use
  Company Number: US-BRISTOL-MYERS SQUIBB COMPANY-14472161

PATIENT
  Age: 36 Year
  Sex: Female

DRUGS (1)
  1. ABILIFY [Suspect]
     Indication: AFFECTIVE DISORDER
     Dosage: INCREASED TO 20MG AFTER 14DAYS
     Route: 048
     Dates: start: 20081210

REACTIONS (2)
  - SWOLLEN TONGUE [None]
  - TONGUE ULCERATION [None]
